FAERS Safety Report 15489597 (Version 1)
Quarter: 2018Q4

REPORT INFORMATION
  Report Type: Spontaneous
  Country: US (occurrence: US)
  Receive Date: 20181004
  Receipt Date: 20181004
  Transmission Date: 20190205
  Serious: No
  Sender: FDA-Public Use
  Company Number: None

PATIENT
  Age: 58 Year
  Sex: Female

DRUGS (1)
  1. PROLIA [Suspect]
     Active Substance: DENOSUMAB
     Dosage: ?          OTHER FREQUENCY:Q6M;?
     Route: 058
     Dates: start: 20170727, end: 20180228

REACTIONS (2)
  - Rash generalised [None]
  - Urticaria [None]

NARRATIVE: CASE EVENT DATE: 201805
